FAERS Safety Report 18455804 (Version 1)
Quarter: 2020Q4

REPORT INFORMATION
  Report Type: Spontaneous
  Country: ES (occurrence: ES)
  Receive Date: 20201103
  Receipt Date: 20201103
  Transmission Date: 20210114
  Serious: Yes (Other)
  Sender: FDA-Public Use
  Company Number: ES-TEVA-2020-ES-1843687

PATIENT
  Age: 54 Year
  Sex: Male

DRUGS (22)
  1. PREDNISONE. [Suspect]
     Active Substance: PREDNISONE
     Indication: HISTIOCYTIC SARCOMA
  2. ETOPOSIDE. [Suspect]
     Active Substance: ETOPOSIDE
     Indication: CHRONIC MYELOMONOCYTIC LEUKAEMIA
     Dosage: TREATMENT COMPLETED AS A PART OF EPOCH REGIMEN AND ALSO RECEIVED ETOPOSIDE AS A PART OF ICE REGIMEN
     Route: 065
  3. IFOSFAMIDE. [Suspect]
     Active Substance: IFOSFAMIDE
     Indication: HISTIOCYTIC SARCOMA
  4. IDARUBICIN [Suspect]
     Active Substance: IDARUBICIN
     Indication: ACUTE MYELOID LEUKAEMIA
  5. ADRIAMYCIN [Suspect]
     Active Substance: DOXORUBICIN HYDROCHLORIDE
     Indication: CHRONIC MYELOMONOCYTIC LEUKAEMIA
     Dosage: RECEIVED AS A PART OF EPOCH REGIMEN
     Route: 065
  6. THALIDOMIDE [Suspect]
     Active Substance: THALIDOMIDE
     Indication: HISTIOCYTIC SARCOMA
  7. CYTARABINE. [Suspect]
     Active Substance: CYTARABINE
     Indication: HISTIOCYTIC SARCOMA
  8. PREDNISONE. [Suspect]
     Active Substance: PREDNISONE
     Indication: CHRONIC MYELOMONOCYTIC LEUKAEMIA
     Dosage: RECEIVED AS A PART OF EPOCH REGIMEN
     Route: 065
  9. CYTARABINE. [Suspect]
     Active Substance: CYTARABINE
     Indication: CHRONIC MYELOMONOCYTIC LEUKAEMIA
     Route: 065
  10. ETOPOSIDE. [Suspect]
     Active Substance: ETOPOSIDE
     Indication: HISTIOCYTIC SARCOMA
  11. CYCLOPHOSPHAMIDE. [Suspect]
     Active Substance: CYCLOPHOSPHAMIDE
     Indication: HISTIOCYTIC SARCOMA
  12. VINCRISTINE [Suspect]
     Active Substance: VINCRISTINE
     Indication: CHRONIC MYELOMONOCYTIC LEUKAEMIA
     Dosage: RECEIVED AS A PART OF EPOCH REGIMEN
     Route: 065
  13. CYTARABINE. [Suspect]
     Active Substance: CYTARABINE
     Indication: ACUTE MYELOID LEUKAEMIA
  14. CYCLOPHOSPHAMIDE. [Suspect]
     Active Substance: CYCLOPHOSPHAMIDE
     Indication: CHRONIC MYELOMONOCYTIC LEUKAEMIA
     Dosage: RECEIVED AS A PART OF EPOCH REGIMEN
     Route: 065
  15. VINCRISTINE [Suspect]
     Active Substance: VINCRISTINE
     Indication: HISTIOCYTIC SARCOMA
  16. CISPLATIN. [Suspect]
     Active Substance: CISPLATIN
     Indication: CHRONIC MYELOMONOCYTIC LEUKAEMIA
     Dosage: RECEIVED AS A PART OF ICE REGIMEN
     Route: 065
  17. CISPLATIN. [Suspect]
     Active Substance: CISPLATIN
     Indication: HISTIOCYTIC SARCOMA
  18. THALIDOMIDE [Suspect]
     Active Substance: THALIDOMIDE
     Indication: CHRONIC MYELOMONOCYTIC LEUKAEMIA
     Route: 065
  19. IDARUBICIN [Suspect]
     Active Substance: IDARUBICIN
     Indication: CHRONIC MYELOMONOCYTIC LEUKAEMIA
     Route: 065
  20. ADRIAMYCIN [Suspect]
     Active Substance: DOXORUBICIN HYDROCHLORIDE
     Indication: HISTIOCYTIC SARCOMA
  21. IFOSFAMIDE. [Suspect]
     Active Substance: IFOSFAMIDE
     Indication: CHRONIC MYELOMONOCYTIC LEUKAEMIA
     Dosage: RECEIVED AS A PART OF ICE REGIMEN
     Route: 065
  22. IDARUBICIN [Suspect]
     Active Substance: IDARUBICIN
     Indication: HISTIOCYTIC SARCOMA

REACTIONS (2)
  - Acute myeloid leukaemia [Unknown]
  - Drug ineffective [Unknown]
